FAERS Safety Report 9401197 (Version 1)
Quarter: 2013Q3

REPORT INFORMATION
  Report Type: Spontaneous
  Country: JP (occurrence: JP)
  Receive Date: 20130715
  Receipt Date: 20130715
  Transmission Date: 20140515
  Serious: Yes (Death, Other)
  Sender: FDA-Public Use
  Company Number: JP-BAYER-2013-084931

PATIENT
  Age: 60 Year
  Sex: Male

DRUGS (1)
  1. BAYASPIRIN [Suspect]
     Dosage: UNK
     Route: 048
     Dates: start: 201202, end: 201206

REACTIONS (2)
  - Drug-induced liver injury [None]
  - Hepatitis fulminant [Fatal]
